FAERS Safety Report 12270941 (Version 3)
Quarter: 2017Q1

REPORT INFORMATION
  Report Type: Spontaneous
  Country: US (occurrence: US)
  Receive Date: 20160415
  Receipt Date: 20170126
  Transmission Date: 20170428
  Serious: Yes (Other)
  Sender: FDA-Public Use
  Company Number: US-ASTELLAS-2016US010454

PATIENT
  Sex: Male

DRUGS (2)
  1. XTANDI [Suspect]
     Active Substance: ENZALUTAMIDE
     Indication: PROSTATE CANCER
     Dosage: 160 MG (04 X 40 MG), ONCE DAILY
     Route: 048
     Dates: start: 20160227
  2. XTANDI [Suspect]
     Active Substance: ENZALUTAMIDE
     Dosage: 160 MG (04 X 40 MG), ONCE DAILY
     Route: 048
     Dates: start: 20160308

REACTIONS (9)
  - Joint swelling [Recovered/Resolved]
  - Eye swelling [Recovered/Resolved]
  - Urinary incontinence [Recovering/Resolving]
  - Pollakiuria [Recovering/Resolving]
  - Hot flush [Not Recovered/Not Resolved]
  - Hypersensitivity [Recovered/Resolved]
  - Weight increased [Recovered/Resolved]
  - Asthenia [Not Recovered/Not Resolved]
  - Fatigue [Not Recovered/Not Resolved]
